FAERS Safety Report 10256170 (Version 1)
Quarter: 2014Q2

REPORT INFORMATION
  Report Type: Spontaneous
  Country: US (occurrence: US)
  Receive Date: 20140624
  Receipt Date: 20140624
  Transmission Date: 20141212
  Serious: No
  Sender: FDA-Public Use
  Company Number: US-ZOGENIX, INC.-2012ZX000078

PATIENT
  Sex: Female
  Weight: 49.94 kg

DRUGS (6)
  1. SUMAVEL DOSEPRO [Suspect]
     Indication: MIGRAINE
  2. METOCLTRAMIDE [Concomitant]
     Indication: GASTROOESOPHAGEAL REFLUX DISEASE
  3. DICYCLOMINE [Concomitant]
     Indication: GASTROOESOPHAGEAL REFLUX DISEASE
  4. DEXILANT DR [Concomitant]
     Indication: GASTROOESOPHAGEAL REFLUX DISEASE
  5. OMEPRAZOLE [Concomitant]
     Indication: GASTROOESOPHAGEAL REFLUX DISEASE
  6. RECLAST [Concomitant]
     Indication: OSTEOPOROSIS

REACTIONS (3)
  - Injection site pain [Recovered/Resolved]
  - Device malfunction [Recovered/Resolved]
  - Accidental exposure to product [Recovered/Resolved]
